FAERS Safety Report 19857124 (Version 2)
Quarter: 2021Q4

REPORT INFORMATION
  Report Type: Spontaneous
  Country: US (occurrence: US)
  Receive Date: 20210920
  Receipt Date: 20211006
  Transmission Date: 20220303
  Serious: Yes (Other)
  Sender: FDA-Public Use
  Company Number: US-SANOFI-00770246

PATIENT
  Age: 52 Year
  Sex: Female
  Weight: 85.2 kg

DRUGS (2)
  1. DUPIXENT [Suspect]
     Active Substance: DUPILUMAB
     Indication: Asthma
     Dosage: 400 MG, 1X
     Dates: start: 20210830, end: 20210830
  2. PREDNISONE [Suspect]
     Active Substance: PREDNISONE
     Dates: start: 20210830

REACTIONS (12)
  - Syncope [Unknown]
  - Multiple sclerosis [Unknown]
  - Headache [Recovered/Resolved]
  - Confusional state [Unknown]
  - Insomnia [Unknown]
  - Visual impairment [Unknown]
  - Ocular hyperaemia [Recovering/Resolving]
  - Eye inflammation [Unknown]
  - Dry eye [Unknown]
  - Rash pruritic [Unknown]
  - Rash [Unknown]
  - Hypersensitivity [Unknown]

NARRATIVE: CASE EVENT DATE: 20210101
